FAERS Safety Report 10161918 (Version 2)
Quarter: 2014Q2

REPORT INFORMATION
  Report Type: Spontaneous
  Country: AU (occurrence: AU)
  Receive Date: 20140509
  Receipt Date: 20140523
  Transmission Date: 20141212
  Serious: Yes (Other)
  Sender: FDA-Public Use
  Company Number: AU-JNJFOC-20140420866

PATIENT
  Age: 47 Year
  Sex: Male

DRUGS (2)
  1. STELARA [Suspect]
     Indication: PSORIASIS
     Route: 058
     Dates: start: 20120817, end: 20130528
  2. DAIVOBET [Concomitant]
     Indication: PSORIASIS
     Route: 061

REACTIONS (1)
  - Anaplastic large-cell lymphoma [Not Recovered/Not Resolved]
